FAERS Safety Report 6206038-6 (Version None)
Quarter: 2009Q2

REPORT INFORMATION
  Report Type: 
  Country: None (occurrence: None)
  Receive Date: 20090528
  Receipt Date: 20090521
  Transmission Date: 20091009
  Serious: Yes (Life-Threatening, Hospitalization)
  Sender: FDA-Public Use
  Company Number: US-ELI_LILLY_AND_COMPANY-US200905004926

PATIENT
  Sex: Male
  Weight: 122.45 kg

DRUGS (16)
  1. BYETTA [Suspect]
     Indication: TYPE 2 DIABETES MELLITUS
     Dosage: 5 UG, 2/D
     Route: 058
     Dates: start: 20070801, end: 20070901
  2. BYETTA [Suspect]
     Dosage: 10 UG, 2/D
     Route: 058
     Dates: start: 20070901, end: 20080701
  3. BYETTA [Suspect]
     Dosage: 10 UG, 2/D
     Route: 058
     Dates: start: 20081001
  4. GLIMEPIRIDE [Concomitant]
     Dosage: 2 MG, 2/D
  5. METOPROLOL [Concomitant]
     Dosage: 100 MG, DAILY (1/D)
  6. POTASSIUM CHLORIDE [Concomitant]
     Dosage: UNK, DAILY (1/D)
  7. CLONIDINE [Concomitant]
     Dosage: UNK, UNKNOWN
     Dates: end: 20090401
  8. FUROSEMIDE [Concomitant]
     Dosage: UNK, UNKNOWN
  9. SYNTHROID [Concomitant]
     Dosage: UNK, DAILY (1/D)
  10. OMEPRAZOLE [Concomitant]
     Dosage: 20 MG, DAILY (1/D)
  11. SIMVASTATIN [Concomitant]
     Dosage: 40 MG, DAILY (1/D)
  12. NIACIN [Concomitant]
     Dosage: UNK, DAILY (1/D)
  13. MAGNESIUM SULFATE [Concomitant]
     Dosage: 250 MG, 2/D
  14. MULTI-VITAMIN [Concomitant]
     Dosage: UNK, DAILY (1/D)
  15. FISH OIL [Concomitant]
     Dosage: UNK, DAILY (1/D)
  16. VITAMIN B-12 [Concomitant]
     Dosage: UNK, DAILY (1/D)

REACTIONS (11)
  - BLOOD GLUCOSE DECREASED [None]
  - CARDIAC FAILURE CONGESTIVE [None]
  - CHEST DISCOMFORT [None]
  - COLD SWEAT [None]
  - COUGH [None]
  - DIZZINESS [None]
  - FALL [None]
  - FEELING ABNORMAL [None]
  - HYPERHIDROSIS [None]
  - PALPITATIONS [None]
  - VENTRICULAR TACHYCARDIA [None]
